FAERS Safety Report 7439544-7 (Version None)
Quarter: 2011Q2

REPORT INFORMATION
  Report Type: 
  Country: None (occurrence: None)
  Receive Date: 20110427
  Receipt Date: 20110413
  Transmission Date: 20111010
  Serious: Yes (Hospitalization)
  Sender: FDA-Public Use
  Company Number: NL-NAPPMUNDI-GBR-2011-0008063

PATIENT
  Sex: Female
  Weight: 80 kg

DRUGS (12)
  1. DICLOFENAC SODIUM [Concomitant]
     Dosage: 50 MG, TID
     Route: 065
  2. OMEPRAZOLE [Concomitant]
     Dosage: 20 MG, UNK
     Route: 065
  3. BERODUAL [Concomitant]
     Dosage: 1 DF, TID
     Route: 055
  4. MORPHINE SULFATE PR TABLET 10 MG [Suspect]
     Indication: PAIN
     Dosage: 10 MG, BID
     Route: 065
     Dates: start: 20110218, end: 20110222
  5. PAROXETINE HCL [Concomitant]
     Dosage: 10 MG, DAILY
     Route: 065
  6. SPIRIVA [Concomitant]
     Dosage: 18 MCG, DAILY
     Route: 055
  7. SERETIDE [Concomitant]
     Dosage: 50 MCG/DO
     Route: 055
  8. GLIMEPIRIDE [Concomitant]
     Dosage: 1 MG, DAILY
     Route: 065
  9. AERIUS                             /01398501/ [Concomitant]
     Dosage: 5 MG, DAILY
     Route: 065
  10. PREDNISOLON                        /00016201/ [Concomitant]
     Dosage: 5 MG, DAILY
     Route: 065
  11. CALCICHEW D3 [Concomitant]
     Dosage: 1 UNK, UNK
     Route: 065
  12. METFORMINE [Concomitant]
     Dosage: 500 MG, BID
     Route: 065

REACTIONS (1)
  - DELIRIUM [None]
